FAERS Safety Report 25060123 (Version 1)
Quarter: 2025Q1

REPORT INFORMATION
  Report Type: Spontaneous
  Country: FR (occurrence: FR)
  Receive Date: 20250310
  Receipt Date: 20250310
  Transmission Date: 20250409
  Serious: Yes (Disabling, Other)
  Sender: TEVA
  Company Number: FR-TEVA-VS-3301456

PATIENT
  Age: 61 Year
  Sex: Female

DRUGS (1)
  1. PREGABALIN [Suspect]
     Active Substance: PREGABALIN
     Indication: Neuralgia
     Dosage: TEVA SANTE, 3 DF PER DAY
     Route: 065
     Dates: start: 20241216, end: 20241218

REACTIONS (12)
  - Feeding disorder [Recovered/Resolved]
  - Syncope [Recovered/Resolved]
  - Fatigue [Recovering/Resolving]
  - Product dispensing error [Unknown]
  - Somnolence [Recovered/Resolved]
  - Fall [Recovered/Resolved]
  - Wrong product administered [Unknown]
  - Gait inability [Recovered/Resolved]
  - Aphasia [Recovered/Resolved]
  - Mental impairment [Recovered/Resolved]
  - Bradykinesia [Not Recovered/Not Resolved]
  - Bradyphrenia [Not Recovered/Not Resolved]

NARRATIVE: CASE EVENT DATE: 20241201
